FAERS Safety Report 22280503 (Version 1)
Quarter: 2023Q2

REPORT INFORMATION
  Report Type: Spontaneous
  Country: US (occurrence: None)
  Receive Date: 20230502
  Receipt Date: 20230502
  Transmission Date: 20230722
  Serious: Yes (Hospitalization)
  Sender: FDA-Public Use
  Company Number: None

PATIENT
  Age: 40 Year
  Sex: Female
  Weight: 103.5 kg

DRUGS (1)
  1. SAPHNELO [Suspect]
     Active Substance: ANIFROLUMAB-FNIA
     Indication: Systemic lupus erythematosus
     Dosage: OTHER FREQUENCY : EVERY 28 DAYS;?
     Route: 042
     Dates: start: 20220413, end: 20230426

REACTIONS (5)
  - Hypoaesthesia [None]
  - Pain in extremity [None]
  - Chest pain [None]
  - Hypertension [None]
  - Chest discomfort [None]

NARRATIVE: CASE EVENT DATE: 20230426
